FAERS Safety Report 7198658-X (Version None)
Quarter: 2010Q4

REPORT INFORMATION
  Report Type: 
  Country: None (occurrence: None)
  Receive Date: 20101227
  Receipt Date: 20101217
  Transmission Date: 20110411
  Serious: Yes (Other)
  Sender: FDA-Public Use
  Company Number: US-ASTRAZENECA-2010SE59740

PATIENT
  Age: 62 Year
  Sex: Female
  Weight: 81.6 kg

DRUGS (9)
  1. CRESTOR [Suspect]
     Indication: BLOOD CHOLESTEROL INCREASED
     Route: 048
  2. LIPITOR [Suspect]
     Indication: BLOOD CHOLESTEROL INCREASED
     Route: 048
     Dates: start: 20030101
  3. LIPITOR [Suspect]
     Route: 048
     Dates: start: 20100101
  4. TRIAMTERENE AND HYDROCHLOROTHIAZIDE [Suspect]
     Indication: HYPERTENSION
     Dosage: 75/50 MG THREEE TIMES A WEEK
     Route: 065
  5. ENALAPRIL MALEATE [Concomitant]
     Indication: HYPERTENSION
  6. CHLORDIAZEPOXIDE/CLIDINIUM [Concomitant]
     Indication: IRRITABLE BOWEL SYNDROME
     Dosage: 5 MG/2.5 MG FOUR TIMES A DAY
  7. ACETYLSALICYLIC ACID [Concomitant]
  8. ALENDRONATE SODIUM [Concomitant]
     Indication: OSTEOPENIA
  9. MULTI-VITAMIN [Concomitant]

REACTIONS (5)
  - CONSTIPATION [None]
  - MUSCLE SPASMS [None]
  - MYALGIA [None]
  - PAIN IN EXTREMITY [None]
  - WEIGHT DECREASED [None]
